FAERS Safety Report 5656770-8 (Version None)
Quarter: 2008Q1

REPORT INFORMATION
  Report Type: 
  Country: None (occurrence: None)
  Receive Date: 20080310
  Receipt Date: 20080305
  Transmission Date: 20080703
  Serious: Yes (Death)
  Sender: FDA-Public Use
  Company Number: CA-NOVOPROD-272902

PATIENT
  Sex: Male

DRUGS (1)
  1. NIASTASE [Suspect]
     Indication: DRUG USE FOR UNKNOWN INDICATION
     Dosage: 20 UG/KG, BID
     Route: 042

REACTIONS (1)
  - VASCULAR GRAFT OCCLUSION [None]
